FAERS Safety Report 23160612 (Version 2)
Quarter: 2024Q1

REPORT INFORMATION
  Report Type: Report from Study
  Country: US (occurrence: US)
  Receive Date: 20231108
  Receipt Date: 20240105
  Transmission Date: 20240410
  Serious: Yes (Other)
  Sender: FDA-Public Use
  Company Number: US-ALXN-A202306475AA

PATIENT
  Age: 76 Year
  Sex: Male

DRUGS (3)
  1. SOLIRIS [Suspect]
     Active Substance: ECULIZUMAB
     Indication: Myasthenia gravis
     Dosage: UNK
     Route: 065
  2. PREDNISONE [Concomitant]
     Active Substance: PREDNISONE
     Indication: Product used for unknown indication
     Dosage: UNK
     Route: 065
  3. CORTISONE [Concomitant]
     Active Substance: CORTISONE
     Indication: Arthralgia
     Dosage: UNK
     Route: 065

REACTIONS (22)
  - Cardiac failure congestive [Unknown]
  - Myasthenia gravis [Not Recovered/Not Resolved]
  - Muscular weakness [Recovering/Resolving]
  - Gait disturbance [Unknown]
  - Soft tissue injury [Unknown]
  - Malaise [Unknown]
  - Weight increased [Unknown]
  - Fluid retention [Unknown]
  - Blood pressure decreased [Recovered/Resolved]
  - Feeling abnormal [Unknown]
  - Migraine [Unknown]
  - Gait inability [Unknown]
  - Fatigue [Unknown]
  - Dizziness [Not Recovered/Not Resolved]
  - Asthenia [Unknown]
  - Bronchitis [Unknown]
  - Arthralgia [Unknown]
  - Food poisoning [Recovered/Resolved]
  - Skin atrophy [Unknown]
  - Diarrhoea [Not Recovered/Not Resolved]
  - Asthenia [Not Recovered/Not Resolved]
  - Drug ineffective [Unknown]

NARRATIVE: CASE EVENT DATE: 20230501
